FAERS Safety Report 8570316-6 (Version None)
Quarter: 2012Q3

REPORT INFORMATION
  Report Type: 
  Country: None (occurrence: None)
  Receive Date: 20120803
  Receipt Date: 20120801
  Transmission Date: 20120928
  Serious: Yes (Death, Life-Threatening, Other)
  Sender: FDA-Public Use
  Company Number: PHHY2012NO060867

PATIENT
  Sex: Female

DRUGS (9)
  1. AKINETON [Concomitant]
  2. NOZINAN [Concomitant]
     Route: 048
  3. NOVORAPID [Concomitant]
  4. CISORDINOL DEPOT [Concomitant]
     Route: 051
  5. AMARYL [Concomitant]
     Route: 048
  6. INSULATARD NPH HUMAN [Concomitant]
     Dosage: 14 IU MORNING + 16 IU EVENING
     Route: 058
  7. AMOXICILLIN [Concomitant]
     Indication: PNEUMONIA
     Dosage: 250 MG (?), 1+0+1+1
     Dates: start: 20120627
  8. METFORMIN HYDROCHLORIDE [Suspect]
     Indication: TYPE 2 DIABETES MELLITUS
     Route: 048
  9. VIVAL [Concomitant]
     Route: 048

REACTIONS (9)
  - BUNDLE BRANCH BLOCK RIGHT [None]
  - LOSS OF CONSCIOUSNESS [None]
  - MYDRIASIS [None]
  - APNOEA [None]
  - ANURIA [None]
  - LACTIC ACIDOSIS [None]
  - CARDIAC ARREST [None]
  - CIRCULATORY COLLAPSE [None]
  - BUNDLE BRANCH BLOCK LEFT [None]
